FAERS Safety Report 20570601 (Version 2)
Quarter: 2022Q1

REPORT INFORMATION
  Report Type: Spontaneous
  Country: SI (occurrence: None)
  Receive Date: 20220309
  Receipt Date: 20220316
  Transmission Date: 20220423
  Serious: Yes (Other)
  Sender: FDA-Public Use
  Company Number: 2022A099399

PATIENT
  Age: 70 Year
  Sex: Male

DRUGS (1)
  1. CALQUENCE [Suspect]
     Active Substance: ACALABRUTINIB
     Indication: Chronic lymphocytic leukaemia
     Route: 048
     Dates: end: 20220215

REACTIONS (1)
  - Myocardial infarction [Recovering/Resolving]
